FAERS Safety Report 20081940 (Version 2)
Quarter: 2021Q4

REPORT INFORMATION
  Report Type: Report from Study
  Country: CO (occurrence: CO)
  Receive Date: 20211117
  Receipt Date: 20211119
  Transmission Date: 20220303
  Serious: Yes (Death, Life-Threatening, Hospitalization, Other)
  Sender: FDA-Public Use
  Company Number: CO-JNJFOC-20211126318

PATIENT
  Sex: Male
  Weight: 80 kg

DRUGS (2)
  1. IMBRUVICA [Suspect]
     Active Substance: IBRUTINIB
     Indication: Marginal zone lymphoma
     Route: 048
     Dates: start: 20210917, end: 2021
  2. IMBRUVICA [Suspect]
     Active Substance: IBRUTINIB
     Route: 048
     Dates: start: 20210922, end: 202111

REACTIONS (3)
  - Pneumonia [Fatal]
  - Haemorrhage [Not Recovered/Not Resolved]
  - Leukaemoid reaction [Not Recovered/Not Resolved]

NARRATIVE: CASE EVENT DATE: 20210101
